FAERS Safety Report 17417695 (Version 1)
Quarter: 2020Q1

REPORT INFORMATION
  Report Type: Spontaneous
  Country: US (occurrence: US)
  Receive Date: 20200213
  Receipt Date: 20200213
  Transmission Date: 20200409
  Serious: Yes (Other)
  Sender: FDA-Public Use
  Company Number: US-GILEAD-2020-0450793

PATIENT
  Age: 51 Year
  Weight: 88.8 kg

DRUGS (1)
  1. YESCARTA [Suspect]
     Active Substance: AXICABTAGENE CILOLEUCEL
     Indication: DIFFUSE LARGE B-CELL LYMPHOMA
     Dosage: 68 ML
     Route: 042
     Dates: start: 20190715, end: 20190715

REACTIONS (2)
  - Cytokine release syndrome [Unknown]
  - Neurotoxicity [Unknown]

NARRATIVE: CASE EVENT DATE: 20190718
